FAERS Safety Report 5945815-3 (Version None)
Quarter: 2008Q4

REPORT INFORMATION
  Report Type: 
  Country: None (occurrence: None)
  Receive Date: 20081104
  Receipt Date: 20081020
  Transmission Date: 20090506
  Serious: Yes (Disabling, Other)
  Sender: FDA-Public Use
  Company Number: 2008002535

PATIENT
  Age: 68 Year

DRUGS (5)
  1. ERLOTINIB (ERLOTINIB) (TABLET) (ERLOTINIB) [Suspect]
     Indication: NON-SMALL CELL LUNG CANCER
     Dosage: (150 MG,QD), ORAL
     Route: 048
     Dates: start: 20080318
  2. DEXAMETHASONE TAB [Suspect]
  3. ACYCLOVIR [Suspect]
  4. NORFLOXACIN [Suspect]
  5. INDOMETHACIN [Suspect]

REACTIONS (1)
  - EPISCLERITIS [None]
